FAERS Safety Report 4741828-8 (Version None)
Quarter: 2005Q3

REPORT INFORMATION
  Report Type: 
  Country: None (occurrence: None)
  Receive Date: 20050803
  Receipt Date: 20041021
  Transmission Date: 20060218
  Serious: Yes (Life-Threatening, Hospitalization)
  Sender: FDA-Public Use
  Company Number: 2004243305US

PATIENT
  Sex: Male

DRUGS (4)
  1. CAMPTOSAR [Suspect]
  2. FLUOROURACIL [Suspect]
  3. LEUCOVORIN CALCIUM [Suspect]
  4. AVASTIN [Suspect]

REACTIONS (1)
  - DIARRHOEA [None]
